FAERS Safety Report 9859005 (Version 1)
Quarter: 2014Q1

REPORT INFORMATION
  Report Type: Spontaneous
  Country: US (occurrence: US)
  Receive Date: 20140131
  Receipt Date: 20140131
  Transmission Date: 20141002
  Serious: Yes (Other)
  Sender: FDA-Public Use
  Company Number: US-PFIZER INC-2014029088

PATIENT
  Sex: Female

DRUGS (1)
  1. TIKOSYN [Suspect]
     Dosage: UNK
     Dates: start: 201307

REACTIONS (4)
  - Abasia [Unknown]
  - Limb discomfort [Unknown]
  - Muscle spasms [Unknown]
  - Arthralgia [Unknown]
